FAERS Safety Report 11485007 (Version 1)
Quarter: 2015Q3

REPORT INFORMATION
  Report Type: Spontaneous
  Country: US (occurrence: US)
  Receive Date: 20150903
  Receipt Date: 20150903
  Transmission Date: 20151125
  Serious: No
  Sender: FDA-Public Use
  Company Number: US-ELI_LILLY_AND_COMPANY-US200810005531

PATIENT
  Age: 77 Year
  Sex: Female
  Weight: 95.24 kg

DRUGS (2)
  1. HUMALOG MIX75/25 [Suspect]
     Active Substance: INSULIN LISPRO
  2. HUMALOG MIX75/25 [Suspect]
     Active Substance: INSULIN LISPRO
     Dosage: UNK, UNK
     Dates: start: 20080819

REACTIONS (5)
  - Visual acuity reduced [Unknown]
  - Drug dispensing error [Unknown]
  - Anxiety [Unknown]
  - Neuropathy peripheral [Unknown]
  - Drug administration error [Unknown]

NARRATIVE: CASE EVENT DATE: 200810
